FAERS Safety Report 4711308-4 (Version None)
Quarter: 2005Q3

REPORT INFORMATION
  Report Type: 
  Country: None (occurrence: None)
  Receive Date: 20050711
  Receipt Date: 20050627
  Transmission Date: 20060218
  Serious: No
  Sender: FDA-Public Use
  Company Number: RS005301-USA

PATIENT
  Sex: Female

DRUGS (5)
  1. ACIPHEX [Suspect]
     Dosage: ORAL
     Route: 048
  2. LEVAQUIN [Concomitant]
  3. ZYRTEC [Concomitant]
  4. SINGULAIR [Concomitant]
  5. NASACORT [Concomitant]

REACTIONS (3)
  - APHONIA [None]
  - BLOOD PRESSURE DECREASED [None]
  - LOSS OF CONSCIOUSNESS [None]
